FAERS Safety Report 7179938-0 (Version None)
Quarter: 2010Q4

REPORT INFORMATION
  Report Type: 
  Country: None (occurrence: None)
  Receive Date: 20101221
  Receipt Date: 20101214
  Transmission Date: 20110411
  Serious: Yes (Other)
  Sender: FDA-Public Use
  Company Number: BR-SANOFI-AVENTIS-2010SA075852

PATIENT
  Age: 70 Year
  Sex: Female
  Weight: 67 kg

DRUGS (8)
  1. LANTUS [Suspect]
     Route: 058
     Dates: start: 20020101
  2. AUTOPEN 24 [Suspect]
  3. METFORMIN HCL [Concomitant]
     Route: 048
  4. DIOVANE [Concomitant]
     Indication: BLOOD PRESSURE
     Route: 048
  5. ALISKIREN [Concomitant]
     Indication: BLOOD PRESSURE
     Route: 048
  6. SOMALGIN [Concomitant]
     Route: 048
  7. CLOPIDOGREL [Concomitant]
     Route: 048
  8. CILOSTAZOL [Concomitant]
     Route: 048

REACTIONS (4)
  - CATARACT [None]
  - FATIGUE [None]
  - UNEVALUABLE EVENT [None]
  - VISION BLURRED [None]
